FAERS Safety Report 15768320 (Version 1)
Quarter: 2018Q4

REPORT INFORMATION
  Report Type: Spontaneous
  Country: JP (occurrence: JP)
  Receive Date: 20181227
  Receipt Date: 20181227
  Transmission Date: 20190205
  Serious: Yes (Other)
  Sender: FDA-Public Use
  Company Number: JP-GILEAD-2018-0382175

PATIENT
  Age: 3 Year
  Sex: Female

DRUGS (2)
  1. ADCIRCA [Concomitant]
     Active Substance: TADALAFIL
     Indication: PULMONARY HYPERTENSION
     Dosage: UNK
     Dates: end: 201804
  2. AMBRISENTAN [Suspect]
     Active Substance: AMBRISENTAN
     Indication: PULMONARY HYPERTENSION
     Dosage: UNK
     Route: 048
     Dates: start: 201804, end: 201809

REACTIONS (5)
  - Interstitial lung disease [Not Recovered/Not Resolved]
  - Thyroid function test abnormal [Unknown]
  - Pyrexia [Unknown]
  - Anaemia [Unknown]
  - Product use issue [Unknown]

NARRATIVE: CASE EVENT DATE: 201804
